FAERS Safety Report 23294596 (Version 1)
Quarter: 2023Q4

REPORT INFORMATION
  Report Type: Spontaneous
  Country: US (occurrence: None)
  Receive Date: 20231213
  Receipt Date: 20231213
  Transmission Date: 20240110
  Serious: Yes (Other)
  Sender: FDA-Public Use
  Company Number: None

PATIENT
  Age: 33 Year
  Sex: Male
  Weight: 106.8 kg

DRUGS (1)
  1. TIANEPTINE [Suspect]
     Active Substance: TIANEPTINE
     Dates: start: 20230401

REACTIONS (3)
  - Overdose [None]
  - Drug dependence [None]
  - Self-injurious ideation [None]

NARRATIVE: CASE EVENT DATE: 20231212
